FAERS Safety Report 8058285-9 (Version None)
Quarter: 2012Q1

REPORT INFORMATION
  Report Type: 
  Country: None (occurrence: None)
  Receive Date: 20120112
  Receipt Date: 20111227
  Transmission Date: 20120608
  Serious: Yes (Other)
  Sender: FDA-Public Use
  Company Number: DSA_48609_2011

PATIENT
  Age: 30 Year
  Sex: Female

DRUGS (4)
  1. ENALAPRIL MALEATE [Suspect]
     Indication: PRODUCT USED FOR UNKNOWN INDICATION
     Dosage: 5 MG, QD, ORAL
     Route: 048
  2. PREDNISONE TAB [Suspect]
     Indication: PRODUCT USED FOR UNKNOWN INDICATION
     Dosage: 7.5 MG QD, EVERY 24 HOURS ORAL
     Route: 048
  3. CYCLOPHOSPHAMIDE [Concomitant]
  4. METHYLDOPA [Suspect]
     Indication: PRODUCT USED FOR UNKNOWN INDICATION
     Dosage: 500 MG, TID, EVEREY 8 HOURS, ORAL
     Route: 048

REACTIONS (6)
  - AORTIC DISORDER [None]
  - RENOVASCULAR HYPERTENSION [None]
  - CAESAREAN SECTION [None]
  - PREGNANCY [None]
  - PREMATURE DELIVERY [None]
  - MATERNAL EXPOSURE DURING PREGNANCY [None]
